FAERS Safety Report 6817969-8 (Version None)
Quarter: 2010Q3

REPORT INFORMATION
  Report Type: 
  Country: None (occurrence: None)
  Receive Date: 20100706
  Receipt Date: 20100527
  Transmission Date: 20110219
  Serious: No
  Sender: FDA-Public Use
  Company Number: US-BAYER-201024741NA

PATIENT
  Age: 23 Year
  Sex: Female
  Weight: 44 kg

DRUGS (1)
  1. MAGNEVIST [Suspect]
     Indication: NUCLEAR MAGNETIC RESONANCE IMAGING
     Dosage: TOTAL DAILY DOSE: 9 ML  UNIT DOSE: 10 ML
     Route: 042
     Dates: start: 20100526, end: 20100526

REACTIONS (3)
  - CHEST DISCOMFORT [None]
  - PRURITUS [None]
  - URTICARIA [None]
